FAERS Safety Report 9517378 (Version 1)
Quarter: 2013Q1

REPORT INFORMATION
  Report Type: Spontaneous
  Country: US (occurrence: None)
  Receive Date: 20130305
  Receipt Date: 20130305
  Transmission Date: 20140127
  Serious: Yes (Other)
  Sender: FDA-Public Use
  Company Number: 163-21880-12050692

PATIENT
  Age: 76 Year
  Sex: Male
  Weight: 88.45 kg

DRUGS (8)
  1. REVLIMID [Suspect]
     Indication: PLASMA CELL MYELOMA
     Dosage: 21IN 21 D
     Route: 048
     Dates: start: 20120213, end: 20120429
  2. ZOMETA (ZOLEDRONIC ACID) [Concomitant]
  3. ASA (ACETYLSALICYLIC ACID) [Concomitant]
  4. DEXAMETHASONE (DEXAMETHASONE) [Concomitant]
  5. ESSENTIAL MEGA (MULTIVITAMINS) [Concomitant]
  6. HYDROXYZINE HCL (HYDROXYZINE HYDROCHLORIDE) [Concomitant]
  7. NASONEX (MOMETASONE FUROATE) [Concomitant]
  8. VICODIN ES (VICODINE) [Concomitant]

REACTIONS (5)
  - Flatulence [None]
  - Decreased appetite [None]
  - Weight decreased [None]
  - Abdominal pain upper [None]
  - Constipation [None]
